FAERS Safety Report 19623830 (Version 3)
Quarter: 2021Q4

REPORT INFORMATION
  Report Type: Spontaneous
  Country: US (occurrence: US)
  Receive Date: 20210728
  Receipt Date: 20211216
  Transmission Date: 20220303
  Serious: No
  Sender: FDA-Public Use
  Company Number: US-BRISTOL-MYERS SQUIBB COMPANY-BMS-2021-071416

PATIENT
  Age: 69 Year
  Sex: Female

DRUGS (2)
  1. ORENCIA [Suspect]
     Active Substance: ABATACEPT
     Indication: Osteoporosis
     Dosage: 125 MILLIGRAM, QWK
     Route: 058
     Dates: start: 20210623
  2. ORENCIA [Suspect]
     Active Substance: ABATACEPT
     Dosage: 87.5 MILLIGRAM, QWK
     Route: 058

REACTIONS (2)
  - Intentional product use issue [Unknown]
  - Mouth ulceration [Unknown]

NARRATIVE: CASE EVENT DATE: 20210623
